FAERS Safety Report 7284261-X (Version None)
Quarter: 2011Q1

REPORT INFORMATION
  Report Type: 
  Country: None (occurrence: None)
  Receive Date: 20110209
  Receipt Date: 20110204
  Transmission Date: 20110831
  Serious: Yes (Other)
  Sender: FDA-Public Use
  Company Number: US-PFIZER INC-2011026303

PATIENT
  Sex: Female

DRUGS (1)
  1. RAPAMUNE [Suspect]
     Indication: LYMPHATIC DISORDER
     Dosage: UNK

REACTIONS (2)
  - PLEURAL EFFUSION [None]
  - PERICARDIAL EFFUSION [None]
